FAERS Safety Report 7339563-5 (Version None)
Quarter: 2011Q1

REPORT INFORMATION
  Report Type: 
  Country: None (occurrence: None)
  Receive Date: 20110308
  Receipt Date: 20110221
  Transmission Date: 20110831
  Serious: No
  Sender: FDA-Public Use
  Company Number: US-AMGEN-USASP2011010403

PATIENT
  Age: 75 Year
  Sex: Female

DRUGS (14)
  1. FIBERCON                           /00567701/ [Concomitant]
  2. PROLIA [Suspect]
     Indication: OSTEOPOROSIS POSTMENOPAUSAL
     Dosage: 60 MG, Q6MO
     Dates: start: 20110113
  3. PREVIDENT [Concomitant]
  4. VALIUM [Concomitant]
  5. PREMARIN [Concomitant]
  6. NEXIUM [Concomitant]
  7. TYLENOL (CAPLET) [Concomitant]
  8. TRAZODONE HCL [Concomitant]
  9. TUMS ULTRA SPEARMINT [Concomitant]
  10. ANTIFUNGALS FOR TOPICAL USE [Concomitant]
  11. CALCIUM [Concomitant]
  12. VITAMIN A [Concomitant]
  13. MULTIVITAMIN                       /00097801/ [Concomitant]
  14. LOPERAMIDE [Concomitant]

REACTIONS (2)
  - OESOPHAGEAL PAIN [None]
  - ARTHRALGIA [None]
